FAERS Safety Report 9913743 (Version 1)
Quarter: 2014Q1

REPORT INFORMATION
  Report Type: Spontaneous
  Country: US (occurrence: None)
  Receive Date: 20140214
  Receipt Date: 20140214
  Transmission Date: 20141002
  Serious: Yes (Death)
  Sender: FDA-Public Use
  Company Number: AUR-APL-2014-01439

PATIENT
  Age: 23 Year
  Sex: Male

DRUGS (5)
  1. CYCLOBENZAPRINE (CYCLOBENZAPRINE) [Suspect]
     Indication: PRODUCT USED FOR UNKNOWN INDICATION
  2. HEROIN (DIAMORPHINE) (DIAMORPHINE) [Suspect]
     Indication: ILL-DEFINED DISORDER
     Dosage: PARENTERAL
  3. DIAZEPAM (DIAZEPAM) [Suspect]
     Indication: ILL-DEFINED DISORDER
  4. TRAZODONE (TRAZODONE) [Suspect]
     Indication: ILL-DEFINED DISORDER
  5. CODEINE [Suspect]
     Indication: ILL-DEFINED DISORDER

REACTIONS (3)
  - Drug abuse [None]
  - Toxicity to various agents [None]
  - Exposure via ingestion [None]
